FAERS Safety Report 8402636-X (Version None)
Quarter: 2012Q2

REPORT INFORMATION
  Report Type: 
  Country: None (occurrence: None)
  Receive Date: 20120601
  Receipt Date: 20120529
  Transmission Date: 20120825
  Serious: Yes (Hospitalization)
  Sender: FDA-Public Use
  Company Number: PHHO2011NL019486

PATIENT
  Sex: Male
  Weight: 86 kg

DRUGS (15)
  1. MYFORTIC [Suspect]
     Indication: RENAL TRANSPLANT
     Dosage: 360 MG, BID
     Dates: start: 20110815
  2. TAMSULOSIN HCL [Concomitant]
     Indication: BENIGN PROSTATIC HYPERPLASIA
     Dosage: 40 MG, UNK
     Route: 065
     Dates: start: 20110913, end: 20111103
  3. PROGRAF [Suspect]
     Indication: RENAL TRANSPLANT
     Dosage: 3 MG, BID
     Dates: start: 20110815
  4. AUGMENTIN '125' [Suspect]
  5. POLYGAM S/D [Suspect]
  6. COTRIM [Concomitant]
     Indication: PROPHYLAXIS
     Dosage: 450 MG, UNK
     Route: 065
     Dates: start: 20110913, end: 20111103
  7. METFORMIN HCL [Concomitant]
     Indication: DIABETES PROPHYLAXIS
     Dosage: 500 MG, TID
     Dates: start: 20111031
  8. NIFEDIPINE [Concomitant]
     Indication: HYPERTENSION
     Dosage: 30 MG, QD
     Dates: start: 20110824
  9. METOPROLOL TARTRATE [Concomitant]
     Indication: HYPERTENSION
     Dosage: 50 MG, BID
     Dates: start: 20110812
  10. CIPROFLOXACIN [Suspect]
  11. SIMVASTATIN [Concomitant]
     Indication: HYPERCHOLESTEROLAEMIA
     Dosage: UNK
     Dates: start: 20110913, end: 20111103
  12. NEXIUM [Concomitant]
     Indication: PROPHYLAXIS
     Dosage: 20 MG, UNK
     Route: 065
     Dates: start: 20110913, end: 20111103
  13. THYROX [Concomitant]
     Indication: HYPOTHYROIDISM
     Dosage: 0.1 MG, QD
     Dates: start: 20110824
  14. PREDNISONE TAB [Suspect]
     Indication: RENAL TRANSPLANT
     Dosage: 5 MG, BID
     Dates: start: 20110815
  15. ASCAL [Concomitant]
     Indication: PROPHYLAXIS
     Dosage: 100 MG, UNK
     Route: 048
     Dates: start: 20110913, end: 20111103

REACTIONS (9)
  - UROSEPSIS [None]
  - WOUND INFECTION [None]
  - RENAL FAILURE ACUTE [None]
  - PYELONEPHRITIS ACUTE [None]
  - RENAL TUBULAR NECROSIS [None]
  - KIDNEY TRANSPLANT REJECTION [None]
  - PNEUMONIA [None]
  - LEFT VENTRICULAR FAILURE [None]
  - TRANSPLANT ABSCESS [None]
